FAERS Safety Report 5525563-4 (Version None)
Quarter: 2007Q4

REPORT INFORMATION
  Report Type: 
  Country: None (occurrence: None)
  Receive Date: 20071126
  Receipt Date: 20071116
  Transmission Date: 20080405
  Serious: Yes (Hospitalization)
  Sender: FDA-Public Use
  Company Number: B0494691A

PATIENT
  Age: 60 Year
  Sex: Male
  Weight: 65 kg

DRUGS (18)
  1. PAXIL [Suspect]
     Indication: DEPRESSION
     Route: 048
     Dates: start: 20070118
  2. WINTERMIN [Suspect]
     Indication: DEPRESSION
     Route: 048
     Dates: start: 20070528, end: 20071018
  3. AMOXAPINE [Concomitant]
     Indication: DEPRESSION
     Dosage: 50MG PER DAY
     Route: 048
     Dates: start: 20070501, end: 20070606
  4. SOLANAX [Concomitant]
     Indication: DEPRESSION
     Route: 048
     Dates: start: 20070528
  5. DEPAS [Concomitant]
     Indication: DEPRESSION
     Dosage: .5MG PER DAY
     Route: 048
     Dates: start: 20061209, end: 20070606
  6. DORAL [Concomitant]
     Indication: INSOMNIA
     Route: 048
     Dates: start: 20070528
  7. ROHYPNOL [Concomitant]
     Indication: INSOMNIA
     Dosage: 2MG PER DAY
     Route: 048
     Dates: start: 20070528, end: 20070606
  8. MYSLEE [Concomitant]
     Indication: INSOMNIA
     Dosage: 10MG PER DAY
     Route: 048
     Dates: start: 20070528, end: 20070606
  9. VEGETAMIN A [Concomitant]
     Indication: INSOMNIA
     Route: 048
     Dates: start: 20070528
  10. VEGETAMIN-B [Concomitant]
     Indication: INSOMNIA
     Route: 048
     Dates: start: 20070528, end: 20070606
  11. TOLEDOMIN [Concomitant]
     Indication: DEPRESSION
     Route: 048
     Dates: start: 20061209
  12. LORAZEPAM [Concomitant]
     Indication: ANXIETY
     Route: 048
     Dates: start: 20070625, end: 20070716
  13. EURODIN [Concomitant]
     Indication: INSOMNIA
     Dosage: 2MG PER DAY
     Route: 048
     Dates: start: 20070710, end: 20070716
  14. HIRNAMIN [Concomitant]
     Indication: ANXIETY
     Route: 048
     Dates: start: 20070118, end: 20070606
  15. PROMETHAZINE [Concomitant]
     Indication: ANXIETY
     Route: 048
     Dates: start: 20070118, end: 20070911
  16. SEROQUEL [Concomitant]
     Indication: DEPRESSION
     Dosage: 25MG PER DAY
     Route: 048
     Dates: start: 20071019
  17. VANCOMYCIN [Concomitant]
     Indication: DRUG USE FOR UNKNOWN INDICATION
     Dosage: 1G PER DAY
     Route: 042
     Dates: start: 20070606, end: 20070607
  18. FUROSEMIDE [Concomitant]
     Indication: POLYURIA
     Dosage: 20MG PER DAY
     Route: 042
     Dates: start: 20070607, end: 20070607

REACTIONS (9)
  - ALANINE AMINOTRANSFERASE INCREASED [None]
  - ASPARTATE AMINOTRANSFERASE INCREASED [None]
  - BLOOD ALKALINE PHOSPHATASE INCREASED [None]
  - C-REACTIVE PROTEIN INCREASED [None]
  - GAMMA-GLUTAMYLTRANSFERASE INCREASED [None]
  - HEPATIC ENZYME INCREASED [None]
  - NEUTROPHIL COUNT INCREASED [None]
  - PYREXIA [None]
  - WHITE BLOOD CELL COUNT INCREASED [None]
